FAERS Safety Report 5815562-7 (Version None)
Quarter: 2008Q3

REPORT INFORMATION
  Report Type: 
  Country: None (occurrence: None)
  Receive Date: 20080718
  Receipt Date: 20080710
  Transmission Date: 20090109
  Serious: Yes (Other)
  Sender: FDA-Public Use
  Company Number: PR-PFIZER INC-2008058109

PATIENT
  Age: 27 Year
  Sex: Female

DRUGS (4)
  1. NELFINAVIR MESILATE [Suspect]
     Indication: HIV INFECTION
     Dosage: DAILY DOSE:2500MG
     Route: 048
  2. FOSAMPRENAVIR [Suspect]
     Indication: HIV INFECTION
     Dosage: DAILY DOSE:1400MG
     Route: 048
     Dates: start: 20080424
  3. RITONAVIR [Suspect]
     Indication: HIV INFECTION
     Dosage: DAILY DOSE:200MG
     Route: 048
  4. LAMIVUDINE AND ZIDOVUDINE [Suspect]
     Indication: HIV INFECTION
     Dosage: DAILY DOSE:900MG
     Route: 048

REACTIONS (2)
  - ABORTION SPONTANEOUS [None]
  - PREMATURE SEPARATION OF PLACENTA [None]
